FAERS Safety Report 4996181-1 (Version None)
Quarter: 2006Q2

REPORT INFORMATION
  Report Type: 
  Country: None (occurrence: None)
  Receive Date: 20060504
  Receipt Date: 20060427
  Transmission Date: 20061013
  Serious: Yes (Disabling, Other)
  Sender: FDA-Public Use
  Company Number: 2006054997

PATIENT
  Age: 66 Year

DRUGS (8)
  1. LIPITOR [Suspect]
     Indication: ILL-DEFINED DISORDER
     Dosage: 5 MG (1 IN 1 D), ORAL
     Route: 048
     Dates: start: 20050907
  2. NORVASC [Suspect]
     Indication: ILL-DEFINED DISORDER
     Dosage: 5 MG (1 IN 1 D), ORAL
     Route: 048
     Dates: start: 20050907
  3. MICARDIS [Suspect]
     Indication: ILL-DEFINED DISORDER
     Dosage: 40 MG (1 IN 1 D), ORAL
     Route: 048
     Dates: start: 20050907
  4. AMARYL [Suspect]
     Indication: ILL-DEFINED DISORDER
     Dosage: 1 MG (1 IN 1 D), ORAL
     Route: 048
     Dates: start: 20050907
  5. DORNER (BERAPROST SODIUM) [Suspect]
     Indication: ILL-DEFINED DISORDER
     Dosage: 120 UG (1 IN 1 D), ORAL
     Route: 048
     Dates: start: 20050913
  6. TICLOPIDINE HCL [Suspect]
     Indication: ILL-DEFINED DISORDER
     Dosage: 200 MG (1 IN 1 D), ORAL
     Route: 048
     Dates: start: 20050913
  7. LAFUTIDINE (LAFUTIDINE) [Concomitant]
  8. WARFARIN SODIUM [Concomitant]

REACTIONS (3)
  - BETA 2 MICROGLOBULIN URINE INCREASED [None]
  - CHROMATURIA [None]
  - NEPHRITIS [None]
